FAERS Safety Report 7451209-4 (Version None)
Quarter: 2011Q2

REPORT INFORMATION
  Report Type: 
  Country: None (occurrence: None)
  Receive Date: 20110502
  Receipt Date: 20110427
  Transmission Date: 20111010
  Serious: Yes (Death)
  Sender: FDA-Public Use
  Company Number: BR-ASTRAZENECA-2011SE24520

PATIENT
  Age: 88 Year
  Sex: Female

DRUGS (2)
  1. ATACAND HCT [Suspect]
     Dosage: 8/12.5 MG
     Route: 048
     Dates: start: 20080101
  2. ATACAND HCT [Suspect]
     Indication: HYPERTENSION
     Dosage: 16/12.5 MG
     Route: 048
     Dates: start: 20080101

REACTIONS (2)
  - DIVERTICULITIS [None]
  - BLOOD PRESSURE INADEQUATELY CONTROLLED [None]
